FAERS Safety Report 19402255 (Version 1)
Quarter: 2021Q2

REPORT INFORMATION
  Report Type: Spontaneous
  Country: FR (occurrence: FR)
  Receive Date: 20210610
  Receipt Date: 20210610
  Transmission Date: 20210717
  Serious: Yes (Other)
  Sender: FDA-Public Use
  Company Number: FR-MYLANLABS-2021M1034060

PATIENT
  Age: 85 Year
  Sex: Male

DRUGS (1)
  1. CLOZAPINE. [Suspect]
     Active Substance: CLOZAPINE
     Indication: PRODUCT USED FOR UNKNOWN INDICATION
     Dosage: 100 MILLIGRAM, QD (25 MILLIGRAM, FOUR TIMES/DAY)
     Route: 065

REACTIONS (5)
  - Ejection fraction decreased [Unknown]
  - Left ventricular dilatation [Unknown]
  - Low cardiac output syndrome [Unknown]
  - Hepatic cytolysis [Unknown]
  - Congestive cardiomyopathy [Unknown]
